FAERS Safety Report 5932822-X (Version None)
Quarter: 2008Q4

REPORT INFORMATION
  Report Type: 
  Country: None (occurrence: None)
  Receive Date: 20081027
  Receipt Date: 20081027
  Transmission Date: 20090506
  Serious: Yes (Hospitalization)
  Sender: FDA-Public Use
  Company Number: None

PATIENT
  Sex: Male
  Weight: 85 kg

DRUGS (4)
  1. FLUOROURACIL [Suspect]
     Dosage: 18547.2 MG
     Dates: end: 20081015
  2. BEVACIZUMAB (RHUMAB VEGF) [Suspect]
     Dosage: 1700 MG
     Dates: end: 20081015
  3. LEUCOVORIN CALCIUM [Suspect]
     Dosage: 3312 MG
     Dates: end: 20081015
  4. POLYETHYLENE GLYCOL INSULIN [Concomitant]

REACTIONS (2)
  - DIZZINESS [None]
  - FALL [None]
